FAERS Safety Report 25957082 (Version 1)
Quarter: 2025Q4

REPORT INFORMATION
  Report Type: Spontaneous
  Country: AU (occurrence: AU)
  Receive Date: 20251024
  Receipt Date: 20251024
  Transmission Date: 20260117
  Serious: Yes (Hospitalization, Other)
  Sender: IPSEN BIOPHARMACEUTICALS, INC.
  Company Number: AU-IPSEN Group, Research and Development-2025-26194

PATIENT
  Age: 9 Month

DRUGS (6)
  1. ODEVIXIBAT [Suspect]
     Active Substance: ODEVIXIBAT
     Indication: Alagille syndrome
     Route: 048
  2. URSODIOL [Concomitant]
     Active Substance: URSODIOL
  3. RIFAMPIN [Concomitant]
     Active Substance: RIFAMPIN
  4. PHENERGAN [Concomitant]
     Active Substance: PROMETHAZINE HYDROCHLORIDE
     Indication: Insomnia
  5. CHOLESTYRAMINE [Concomitant]
     Active Substance: CHOLESTYRAMINE
  6. BASILIXIMAB [Concomitant]
     Active Substance: BASILIXIMAB

REACTIONS (7)
  - Liver disorder [Unknown]
  - Hepatosplenomegaly [Unknown]
  - Mental impairment [Unknown]
  - Liver transplant [Unknown]
  - Pruritus [Unknown]
  - Diarrhoea [Unknown]
  - Anal pruritus [Unknown]
